FAERS Safety Report 7054016-X (Version None)
Quarter: 2010Q4

REPORT INFORMATION
  Report Type: 
  Country: None (occurrence: None)
  Receive Date: 20101020
  Receipt Date: 20101011
  Transmission Date: 20110411
  Serious: No
  Sender: FDA-Public Use
  Company Number: US-PFIZER INC-2010129141

PATIENT
  Sex: Female
  Weight: 83.9 kg

DRUGS (6)
  1. LYRICA [Suspect]
     Indication: ARTHRALGIA
     Dosage: 150 MG, SINGLE
     Route: 048
     Dates: start: 20101010, end: 20101010
  2. VOLTAREN [Suspect]
     Indication: ARTHRALGIA
     Dosage: 100 MG, DAILY
     Route: 048
     Dates: end: 20101001
  3. AMITRIPTYLINE [Suspect]
     Indication: NERVE COMPRESSION
     Dosage: 50 MG, AS NEEDED
     Route: 048
  4. CRESTOR [Concomitant]
     Indication: BLOOD CHOLESTEROL ABNORMAL
     Dosage: 5 MG, DAILY
     Route: 048
     Dates: start: 20090101
  5. LOSARTAN POTASSIUM AND HYDROCHLOROTHIAZIDE [Concomitant]
     Indication: HYPERTENSION
     Dosage: 100/25 MG, DAILY
     Route: 048
  6. NORVASC [Concomitant]
     Indication: HYPERTENSION
     Dosage: 5 MG, DAILY
     Route: 048

REACTIONS (4)
  - BALANCE DISORDER [None]
  - DIZZINESS [None]
  - DRUG INEFFECTIVE [None]
  - SOMNOLENCE [None]
